FAERS Safety Report 23341749 (Version 1)
Quarter: 2023Q4

REPORT INFORMATION
  Report Type: Spontaneous
  Country: DE (occurrence: DE)
  Receive Date: 20231227
  Receipt Date: 20231227
  Transmission Date: 20240110
  Serious: Yes (Other)
  Sender: FDA-Public Use
  Company Number: DE-BRISTOL-MYERS SQUIBB COMPANY-2023-000692

PATIENT
  Age: 56 Year
  Sex: Male
  Weight: 55 kg

DRUGS (41)
  1. FLUOROURACIL [Suspect]
     Active Substance: FLUOROURACIL
     Dosage: 4704 MG, BIW
     Route: 042
     Dates: start: 20221121, end: 20230130
  2. FLUOROURACIL [Suspect]
     Active Substance: FLUOROURACIL
     Indication: Oesophageal adenocarcinoma
     Dosage: 999 MG, BIW
     Route: 042
     Dates: start: 20221121
  3. OXALIPLATIN [Suspect]
     Active Substance: OXALIPLATIN
     Indication: Oesophageal adenocarcinoma
     Dosage: 143MG
     Route: 042
     Dates: start: 20221121, end: 20230130
  4. OPDIVO [Suspect]
     Active Substance: NIVOLUMAB
     Indication: Oesophageal adenocarcinoma
     Dosage: 240 MG, BIW
     Route: 042
     Dates: start: 20221121, end: 20230130
  5. LEUCOVORIN [Suspect]
     Active Substance: LEUCOVORIN\LEUCOVORIN CALCIUM
     Indication: Oesophageal adenocarcinoma
     Dosage: 672 MG, Q2W
     Route: 042
     Dates: start: 20221121, end: 20230130
  6. ABSTRAL [Concomitant]
     Active Substance: FENTANYL CITRATE
     Indication: Product used for unknown indication
     Dosage: 100 UG,PRN
     Route: 048
     Dates: start: 20230224, end: 20230309
  7. AMPHOTERICIN B [Concomitant]
     Active Substance: AMPHOTERICIN B
     Indication: Product used for unknown indication
     Dosage: 100 MG
     Route: 048
     Dates: start: 20230203, end: 20230224
  8. LACTULOSE [Concomitant]
     Active Substance: LACTULOSE
     Indication: Product used for unknown indication
     Dosage: 15 DF
     Route: 048
     Dates: start: 20221121, end: 20230224
  9. CODEINE [Concomitant]
     Active Substance: CODEINE
     Indication: Product used for unknown indication
     Dosage: 30 GTT, PRN
     Route: 048
     Dates: start: 20230216, end: 20230224
  10. DEXAMETHASONE [Concomitant]
     Active Substance: DEXAMETHASONE
     Dosage: 4 MG, QW
     Route: 048
     Dates: start: 20221222, end: 20230131
  11. DEXAMETHASONE [Concomitant]
     Active Substance: DEXAMETHASONE
     Dosage: 8 MG, QMO
     Route: 048
     Dates: start: 20230220, end: 20230309
  12. DEXAMETHASONE [Concomitant]
     Active Substance: DEXAMETHASONE
     Indication: Prophylaxis
     Dosage: 8 MG, QW
     Route: 042
     Dates: start: 20221121
  13. DEXAMETHASONE [Concomitant]
     Active Substance: DEXAMETHASONE
     Dosage: 8 MG, QW
     Route: 048
     Dates: start: 20221121, end: 20230130
  14. DEXAMETHASONE [Concomitant]
     Active Substance: DEXAMETHASONE
     Dosage: 8 MG, QW
     Route: 048
     Dates: start: 20221122
  15. DEXAMETHASONE [Concomitant]
     Active Substance: DEXAMETHASONE
     Dosage: 8 MG
     Route: 042
     Dates: start: 20221121, end: 20230130
  16. DEXAMETHASONE [Concomitant]
     Active Substance: DEXAMETHASONE
     Dosage: 8 MG
     Route: 042
     Dates: start: 20230220, end: 20230220
  17. DEXAMETHASONE [Concomitant]
     Active Substance: DEXAMETHASONE
     Dosage: 8 MG
     Route: 048
     Dates: start: 20230220, end: 20230309
  18. DEXAMETHASONE [Concomitant]
     Active Substance: DEXAMETHASONE
     Dosage: 8 MG, PRN
     Route: 042
     Dates: start: 20230220, end: 20230220
  19. FENTANYL [Concomitant]
     Active Substance: FENTANYL\FENTANYL CITRATE
     Indication: Product used for unknown indication
     Dosage: 25UG
     Route: 062
     Dates: start: 20230224, end: 20230309
  20. FRESUBIN YODRINK [Concomitant]
     Indication: Product used for unknown indication
     Dosage: 200 DF, QD
     Route: 048
     Dates: start: 20230116, end: 20230309
  21. DEXTROSE [Concomitant]
     Active Substance: DEXTROSE\DEXTROSE MONOHYDRATE
     Indication: Prophylaxis
     Dosage: 5 %, QW
     Route: 042
     Dates: start: 20221121, end: 20230130
  22. GRANISETRON [Concomitant]
     Active Substance: GRANISETRON
     Indication: Prophylaxis
     Dosage: 2 MG, QD
     Route: 048
     Dates: start: 20221114, end: 20230130
  23. GRANISETRON [Concomitant]
     Active Substance: GRANISETRON
     Indication: Prophylaxis
     Dosage: 3MG
     Route: 042
     Dates: start: 20221121, end: 20230330
  24. POTASSIUM CARBONATE\POTASSIUM CITRATE [Concomitant]
     Active Substance: POTASSIUM CARBONATE\POTASSIUM CITRATE
     Indication: Product used for unknown indication
     Dosage: 1.56 G, QD
     Route: 048
     Dates: start: 20230224, end: 20230225
  25. MCP [Concomitant]
     Active Substance: METOCLOPRAMIDE HYDROCHLORIDE
     Indication: Product used for unknown indication
     Dosage: 10 MG
     Route: 048
     Dates: end: 20230309
  26. MELPERONE [Concomitant]
     Active Substance: MELPERONE
     Indication: Product used for unknown indication
     Dosage: 50 MG,QD
     Route: 048
     Dates: start: 20230220, end: 20230309
  27. MOVICOL [Concomitant]
     Active Substance: POLYETHYLENE GLYCOL 3350\POTASSIUM CHLORIDE\SODIUM BICARBONATE\SODIUM CHLORIDE
     Indication: Product used for unknown indication
     Dosage: UNK UNK, PRN (AS NECESSARY)
     Route: 048
     Dates: start: 20221118, end: 20230309
  28. FOLATE SODIUM [Concomitant]
     Active Substance: FOLATE SODIUM
     Indication: Product used for unknown indication
     Dosage: 400 MG/M2
     Route: 042
     Dates: start: 20221121, end: 20230130
  29. METAMIZOLE [Concomitant]
     Active Substance: METAMIZOLE
     Indication: Product used for unknown indication
     Dosage: UNK (40 GTT)
     Route: 048
     Dates: start: 20221012, end: 20230203
  30. OLANZAPINE [Concomitant]
     Active Substance: OLANZAPINE
     Indication: Product used for unknown indication
     Dosage: 2.5 MG,QD
     Route: 065
     Dates: start: 20221206, end: 20230224
  31. OLANZAPINE [Concomitant]
     Active Substance: OLANZAPINE
     Dosage: UNK
     Route: 065
     Dates: start: 20221206, end: 20230224
  32. ONDANSETRON [Concomitant]
     Active Substance: ONDANSETRON
     Indication: Product used for unknown indication
     Dosage: 8MG
     Route: 048
     Dates: start: 20221125, end: 20230309
  33. MORPHINE SULFATE [Concomitant]
     Active Substance: MORPHINE SULFATE
     Indication: Product used for unknown indication
     Dosage: 10 MG, PRN (AS NECESSARY)
     Route: 048
     Dates: start: 20221118, end: 20230309
  34. PANTOPRAZOLE [Concomitant]
     Active Substance: PANTOPRAZOLE
     Indication: Product used for unknown indication
     Dosage: 20 MG,QD
     Route: 048
     Dates: start: 20221027, end: 20230309
  35. RAMIPRIL [Concomitant]
     Active Substance: RAMIPRIL
     Indication: Product used for unknown indication
     Dosage: 2.5 MG, PRN
     Route: 048
     Dates: start: 20230127, end: 20230309
  36. Regulax [Concomitant]
     Indication: Product used for unknown indication
     Dosage: UNK,QD (DOSE 15 GTT)
     Route: 048
     Dates: start: 20230303, end: 20230309
  37. LACTATED RINGERS SOLUTION [Concomitant]
     Active Substance: CALCIUM CHLORIDE\POTASSIUM CHLORIDE\SODIUM CHLORIDE\SODIUM LACTATE
     Indication: Product used for unknown indication
     Dosage: 1 DF, PRN
     Route: 042
     Dates: start: 20230217, end: 20230220
  38. Tavor [Concomitant]
     Indication: Product used for unknown indication
     Dosage: 1 MG, PRN
     Route: 048
     Dates: start: 20230303, end: 20230309
  39. DIMENHYDRINATE [Concomitant]
     Active Substance: DIMENHYDRINATE
     Indication: Product used for unknown indication
     Dosage: 50MG (AS NECESSARY )
     Route: 048
     Dates: start: 20221118, end: 20230224
  40. ZOLEDRONIC ACID [Concomitant]
     Active Substance: ZOLEDRONIC ACID
     Indication: Product used for unknown indication
     Dosage: 4 MG, PRN
     Route: 042
     Dates: start: 20230217, end: 20230217
  41. ZOPICLONE [Concomitant]
     Active Substance: ZOPICLONE
     Indication: Product used for unknown indication
     Dosage: 7.5 MG, PRN
     Route: 048
     Dates: start: 20230224, end: 20230309

REACTIONS (4)
  - Polyneuropathy [Recovered/Resolved]
  - Metastases to spine [Unknown]
  - Back pain [Not Recovered/Not Resolved]
  - Dysphagia [Not Recovered/Not Resolved]

NARRATIVE: CASE EVENT DATE: 20221125
